FAERS Safety Report 25602978 (Version 1)
Quarter: 2025Q3

REPORT INFORMATION
  Report Type: Spontaneous
  Country: US (occurrence: US)
  Receive Date: 20250724
  Receipt Date: 20250724
  Transmission Date: 20251021
  Serious: No
  Sender: GALPHARM INTERNATIONAL
  Company Number: US-PERRIGO-24US008037

PATIENT
  Sex: Female

DRUGS (3)
  1. MOTRIN IB [Suspect]
     Active Substance: IBUPROFEN
     Indication: Pain
     Route: 048
     Dates: start: 20240824, end: 20240824
  2. MOTRIN IB [Suspect]
     Active Substance: IBUPROFEN
     Route: 048
     Dates: start: 20240824, end: 20240824
  3. MOTRIN IB [Suspect]
     Active Substance: IBUPROFEN
     Route: 048
     Dates: start: 20240824, end: 20240824

REACTIONS (2)
  - Drug ineffective for unapproved indication [Unknown]
  - Inappropriate schedule of product administration [Unknown]

NARRATIVE: CASE EVENT DATE: 20240824
